FAERS Safety Report 22808104 (Version 2)
Quarter: 2023Q4

REPORT INFORMATION
  Report Type: Spontaneous
  Country: JP (occurrence: JP)
  Receive Date: 20230810
  Receipt Date: 20231004
  Transmission Date: 20240109
  Serious: Yes (Other)
  Sender: FDA-Public Use
  Company Number: JP-ASTELLAS-2023JP009314

PATIENT
  Age: 55 Year
  Sex: Male

DRUGS (35)
  1. XOSPATA [Suspect]
     Active Substance: GILTERITINIB
     Indication: Acute myeloid leukaemia
     Route: 065
  2. XOSPATA [Suspect]
     Active Substance: GILTERITINIB
     Route: 065
  3. XOSPATA [Suspect]
     Active Substance: GILTERITINIB
     Route: 065
  4. XOSPATA [Suspect]
     Active Substance: GILTERITINIB
     Route: 065
  5. XOSPATA [Suspect]
     Active Substance: GILTERITINIB
     Route: 065
  6. XOSPATA [Suspect]
     Active Substance: GILTERITINIB
     Route: 065
  7. XOSPATA [Suspect]
     Active Substance: GILTERITINIB
     Route: 065
  8. VENETOCLAX [Concomitant]
     Active Substance: VENETOCLAX
     Indication: Acute myeloid leukaemia
     Route: 065
  9. VENETOCLAX [Concomitant]
     Active Substance: VENETOCLAX
     Route: 065
  10. VENETOCLAX [Concomitant]
     Active Substance: VENETOCLAX
     Route: 065
  11. VENETOCLAX [Concomitant]
     Active Substance: VENETOCLAX
     Route: 065
  12. VENETOCLAX [Concomitant]
     Active Substance: VENETOCLAX
     Route: 065
  13. VENETOCLAX [Concomitant]
     Active Substance: VENETOCLAX
     Route: 065
  14. VENETOCLAX [Concomitant]
     Active Substance: VENETOCLAX
     Route: 065
  15. VENETOCLAX [Concomitant]
     Active Substance: VENETOCLAX
     Route: 065
  16. VENETOCLAX [Concomitant]
     Active Substance: VENETOCLAX
     Route: 065
  17. VENETOCLAX [Concomitant]
     Active Substance: VENETOCLAX
     Route: 065
  18. VENETOCLAX [Concomitant]
     Active Substance: VENETOCLAX
     Route: 065
  19. VENETOCLAX [Concomitant]
     Active Substance: VENETOCLAX
     Route: 065
  20. VENETOCLAX [Concomitant]
     Active Substance: VENETOCLAX
     Route: 065
  21. VENETOCLAX [Concomitant]
     Active Substance: VENETOCLAX
     Route: 065
  22. AZACITIDINE [Concomitant]
     Active Substance: AZACITIDINE
     Indication: Acute myeloid leukaemia
     Route: 042
  23. AZACITIDINE [Concomitant]
     Active Substance: AZACITIDINE
     Route: 042
  24. AZACITIDINE [Concomitant]
     Active Substance: AZACITIDINE
     Route: 042
  25. AZACITIDINE [Concomitant]
     Active Substance: AZACITIDINE
     Route: 042
  26. AZACITIDINE [Concomitant]
     Active Substance: AZACITIDINE
     Route: 042
  27. AZACITIDINE [Concomitant]
     Active Substance: AZACITIDINE
     Route: 042
  28. AZACITIDINE [Concomitant]
     Active Substance: AZACITIDINE
     Route: 042
  29. AZACITIDINE [Concomitant]
     Active Substance: AZACITIDINE
     Route: 042
  30. AZACITIDINE [Concomitant]
     Active Substance: AZACITIDINE
     Route: 042
  31. AZACITIDINE [Concomitant]
     Active Substance: AZACITIDINE
     Route: 042
  32. AZACITIDINE [Concomitant]
     Active Substance: AZACITIDINE
     Route: 042
  33. AZACITIDINE [Concomitant]
     Active Substance: AZACITIDINE
     Route: 042
  34. AZACITIDINE [Concomitant]
     Active Substance: AZACITIDINE
     Route: 042
  35. AZACITIDINE [Concomitant]
     Active Substance: AZACITIDINE
     Route: 042

REACTIONS (2)
  - Neutropenia [Recovered/Resolved]
  - Thrombocytopenia [Recovered/Resolved]
